FAERS Safety Report 21656289 (Version 1)
Quarter: 2022Q4

REPORT INFORMATION
  Report Type: Spontaneous
  Country: US (occurrence: None)
  Receive Date: 20221128
  Receipt Date: 20221128
  Transmission Date: 20230112
  Serious: Yes (Hospitalization)
  Sender: FDA-Public Use
  Company Number: None

PATIENT
  Age: 79 Year
  Sex: Female

DRUGS (1)
  1. CAPECITABINE [Suspect]
     Active Substance: CAPECITABINE
     Dosage: FREQUENCY : TWICE A DAY;?
     Route: 048

REACTIONS (10)
  - Illness [None]
  - Nonspecific reaction [None]
  - Oral pain [None]
  - Limb discomfort [None]
  - Muscular weakness [None]
  - Pollakiuria [None]
  - Essential tremor [None]
  - Fatigue [None]
  - Pain [None]
  - Gait inability [None]

NARRATIVE: CASE EVENT DATE: 20221128
